FAERS Safety Report 9061361 (Version 1)
Quarter: 2013Q1

REPORT INFORMATION
  Report Type: Spontaneous
  Country: US (occurrence: None)
  Receive Date: 20130208
  Receipt Date: 20130208
  Transmission Date: 20140127
  Serious: Yes (Hospitalization)
  Sender: FDA-Public Use
  Company Number: None

PATIENT
  Age: 46 Year
  Sex: Female

DRUGS (1)
  1. AVONEX PEN 30 MCG BIOGEN [Suspect]
     Indication: MULTIPLE SCLEROSIS
     Dates: start: 20121226, end: 20130206

REACTIONS (8)
  - Nausea [None]
  - Vomiting [None]
  - Hypertension [None]
  - Hypotension [None]
  - Chest pain [None]
  - Dizziness [None]
  - Quality of life decreased [None]
  - Depression [None]
